FAERS Safety Report 9355437 (Version 1)
Quarter: 2013Q2

REPORT INFORMATION
  Report Type: Spontaneous
  Country: None (occurrence: US)
  Receive Date: 20130619
  Receipt Date: 20130619
  Transmission Date: 20140414
  Serious: No
  Sender: FDA-Public Use
  Company Number: -MYLANLABS-2012S1026410

PATIENT
  Sex: Male

DRUGS (2)
  1. DOXEPIN HYDROCHLORIDE [Suspect]
     Route: 048
     Dates: start: 20121214
  2. CYMBALTA [Concomitant]

REACTIONS (1)
  - Back pain [Not Recovered/Not Resolved]
